FAERS Safety Report 4273918-0 (Version None)
Quarter: 2004Q1

REPORT INFORMATION
  Report Type: 
  Country: None (occurrence: None)
  Receive Date: 20040115
  Receipt Date: 20040109
  Transmission Date: 20041129
  Serious: Yes (Hospitalization)
  Sender: FDA-Public Use
  Company Number: 2004-00085

PATIENT
  Age: 58 Year
  Sex: Female
  Weight: 112 kg

DRUGS (5)
  1. COLCHICUM JTL LIQ [Suspect]
  2. AZATHIOPRINE [Suspect]
     Indication: HEART TRANSPLANT
  3. SDZ RAD (RAD) CAPSULE (CAPSULE) [Suspect]
     Indication: HEART TRANSPLANT
     Dosage: 2 MG, BID, ORAL
     Route: 048
  4. LIPITOR [Concomitant]
  5. LASIX [Concomitant]

REACTIONS (2)
  - RHABDOMYOLYSIS [None]
  - SYNOVITIS [None]
